FAERS Safety Report 16893980 (Version 1)
Quarter: 2019Q4

REPORT INFORMATION
  Report Type: Spontaneous
  Country: JP (occurrence: JP)
  Receive Date: 20191008
  Receipt Date: 20191008
  Transmission Date: 20200122
  Serious: Yes (Death, Hospitalization, Disabling, Other)
  Sender: FDA-Public Use
  Company Number: JP-BAYER-2018-161445

PATIENT
  Age: 56 Year
  Sex: Female
  Weight: 53.8 kg

DRUGS (11)
  1. LOXOMARIN [Concomitant]
     Active Substance: LOXOPROFEN
     Indication: COLORECTAL CANCER RECURRENT
     Dosage: DAILY DOSE 180 MG
     Route: 048
     Dates: start: 20140404, end: 20160224
  2. STIVARGA [Suspect]
     Active Substance: REGORAFENIB
     Indication: COLORECTAL CANCER RECURRENT
     Dosage: 160 MG, QD ON FOR 3 WEEKS AND OFF FOR 1 WEEK
     Route: 048
     Dates: start: 20150708, end: 20151201
  3. WARFARIN [Suspect]
     Active Substance: WARFARIN
     Indication: PULMONARY VENOUS THROMBOSIS
     Dosage: DAILY DOSE 3 MG
     Route: 048
     Dates: start: 20150119, end: 20150521
  4. FENTOS [Concomitant]
     Active Substance: FENTANYL
     Indication: COLORECTAL CANCER RECURRENT
     Dosage: DAILY DOSE 6 MG
     Route: 061
     Dates: start: 20140904, end: 20160221
  5. CARELOAD [Concomitant]
     Active Substance: BERAPROST SODIUM
     Dosage: DAILY DOSE 120 ?G
     Route: 048
     Dates: start: 20150119, end: 20170306
  6. LANSOPRAZOLE. [Concomitant]
     Active Substance: LANSOPRAZOLE
     Indication: COLORECTAL CANCER RECURRENT
     Dosage: DAILY DOSE 15 MG
     Route: 048
     Dates: start: 20150330, end: 20170118
  7. STIVARGA [Suspect]
     Active Substance: REGORAFENIB
     Indication: COLORECTAL CANCER RECURRENT
     Dosage: 80 MG, QD ON FOR 3 WEEKS AND OFF FOR 1 WEEK
     Route: 048
     Dates: start: 20150507, end: 20150526
  8. WARFARIN [Suspect]
     Active Substance: WARFARIN
     Indication: PULMONARY VENOUS THROMBOSIS
     Dosage: DAILY DOSE .1.5MG
     Route: 048
     Dates: start: 20150522, end: 20150811
  9. STIVARGA [Suspect]
     Active Substance: REGORAFENIB
     Indication: COLORECTAL CANCER RECURRENT
     Dosage: 120 MG, QD
     Route: 048
     Dates: start: 20150603, end: 20150707
  10. STIVARGA [Suspect]
     Active Substance: REGORAFENIB
     Indication: COLORECTAL CANCER RECURRENT
     Dosage: 160 MG, QD ON FOR 3 WEEKS AND OFF FOR 1 WEEK
     Route: 048
     Dates: end: 20160405
  11. LIXIANA [Suspect]
     Active Substance: EDOXABAN TOSYLATE
     Dosage: DAILY DOSE 30 MG
     Route: 048
     Dates: start: 20150812, end: 20151201

REACTIONS (11)
  - Dry skin [Recovering/Resolving]
  - Pulmonary hypertension [None]
  - Malaise [Not Recovered/Not Resolved]
  - Blood pressure decreased [Recovering/Resolving]
  - International normalised ratio increased [Recovered/Resolved]
  - Tumour haemorrhage [Recovering/Resolving]
  - Melaena [Recovering/Resolving]
  - Colorectal cancer recurrent [Fatal]
  - Dyspnoea [Not Recovered/Not Resolved]
  - Purpura [Recovered/Resolved]
  - Off label use [None]

NARRATIVE: CASE EVENT DATE: 20150513
